FAERS Safety Report 24057114 (Version 2)
Quarter: 2024Q3

REPORT INFORMATION
  Report Type: Spontaneous
  Country: AR (occurrence: AR)
  Receive Date: 20240706
  Receipt Date: 20240726
  Transmission Date: 20241017
  Serious: Yes (Other)
  Sender: ROCHE
  Company Number: AR-ROCHE-10000015577

PATIENT
  Age: 59 Year
  Sex: Female
  Weight: 56 kg

DRUGS (17)
  1. RITUXIMAB [Suspect]
     Active Substance: RITUXIMAB
     Indication: Follicular lymphoma stage III
     Dosage: DOSE AND FREQUENCY WERE NOT REPORTED. DURATION: 2 YEARS.
     Route: 042
     Dates: start: 19990801, end: 19991201
  2. RITUXIMAB [Suspect]
     Active Substance: RITUXIMAB
     Indication: Lymphoma transformation
     Dosage: DOSE AND FREQUENCY WERE NOT REPORTED. DURATION: 4 DOSES
     Route: 042
     Dates: start: 20080501, end: 20080701
  3. RITUXIMAB [Suspect]
     Active Substance: RITUXIMAB
     Dosage: DOSE AND FREQUENCY WERE NOT REPORTED. DURATION: 6 CYCLES
     Route: 042
     Dates: start: 201806, end: 201811
  4. RITUXIMAB [Suspect]
     Active Substance: RITUXIMAB
     Dosage: DOSE AND FREQUENCY WERE NOT REPORTED
     Route: 065
     Dates: start: 20240606, end: 20240717
  5. CYCLOPHOSPHAMIDE [Suspect]
     Active Substance: CYCLOPHOSPHAMIDE
     Indication: Diffuse large B-cell lymphoma
     Dosage: DOSE AND FREQUENCY WERE NOT REPORTED. DURATION: 6 CYCLES
     Route: 065
     Dates: start: 19990801, end: 19991201
  6. CYCLOPHOSPHAMIDE [Suspect]
     Active Substance: CYCLOPHOSPHAMIDE
     Route: 065
     Dates: start: 201806, end: 201811
  7. DOXORUBICIN [Suspect]
     Active Substance: DOXORUBICIN
     Indication: Diffuse large B-cell lymphoma stage II
     Dosage: DOSE AND FREQUENCY WERE NOT REPORTED. DURATION: 6 CYCLES
     Route: 065
     Dates: start: 19990801, end: 19991201
  8. DOXORUBICIN [Suspect]
     Active Substance: DOXORUBICIN
     Route: 065
     Dates: start: 201806, end: 201811
  9. VINCRISTINE [Suspect]
     Active Substance: VINCRISTINE
     Indication: Diffuse large B-cell lymphoma stage II
     Dosage: DOSE AND FREQUENCY WERE NOT REPORTED. DURATION: 6 CYCLES
     Route: 065
     Dates: start: 19990801, end: 19991201
  10. VINCRISTINE [Suspect]
     Active Substance: VINCRISTINE
     Route: 065
     Dates: start: 201806, end: 201811
  11. PREDNISONE [Suspect]
     Active Substance: PREDNISONE
     Indication: Diffuse large B-cell lymphoma stage II
     Dosage: DOSE AND FREQUENCY WERE NOT REPORTED. DURATION: 6 CYCLES
     Route: 065
     Dates: start: 19990801, end: 19991201
  12. PREDNISONE [Suspect]
     Active Substance: PREDNISONE
     Route: 065
     Dates: start: 201806, end: 201811
  13. CARVEDILOL [Concomitant]
     Active Substance: CARVEDILOL
  14. ESCITALOPRAM [Concomitant]
     Active Substance: ESCITALOPRAM OXALATE
  15. GEMCITABINE [Concomitant]
     Active Substance: GEMCITABINE
     Indication: Diffuse large B-cell lymphoma
     Dosage: DOSE AND FREQUENCY WERE NOT REPORTED
     Dates: start: 20240606, end: 20240717
  16. VINORELBINE [Concomitant]
     Active Substance: VINORELBINE TARTRATE
     Indication: Diffuse large B-cell lymphoma
     Dosage: DOSE AND FREQUENCY WERE NOT REPORTED
     Dates: start: 20240606, end: 20240717
  17. DEXAMETHASONE [Concomitant]
     Active Substance: DEXAMETHASONE
     Indication: Diffuse large B-cell lymphoma
     Dosage: DOSE AND FREQUENCY WERE NOT REPORTED
     Dates: start: 20240606, end: 20240717

REACTIONS (8)
  - Diffuse large B-cell lymphoma recurrent [Unknown]
  - B-cell lymphoma recurrent [Unknown]
  - Renal hamartoma [Unknown]
  - Diverticulum intestinal [Unknown]
  - Echocardiogram abnormal [Unknown]
  - Drug ineffective [Unknown]
  - Aspartate aminotransferase increased [Unknown]
  - Alanine aminotransferase increased [Unknown]

NARRATIVE: CASE EVENT DATE: 20180101
